FAERS Safety Report 7742971-1 (Version None)
Quarter: 2011Q3

REPORT INFORMATION
  Report Type: 
  Country: None (occurrence: None)
  Receive Date: 20110908
  Receipt Date: 20110908
  Transmission Date: 20111222
  Serious: Yes (Life-Threatening, Other)
  Sender: FDA-Public Use
  Company Number: None

PATIENT
  Age: 54 Year
  Sex: Female
  Weight: 101.6057 kg

DRUGS (2)
  1. CYMBALTA [Suspect]
     Indication: MUSCULOSKELETAL PAIN
     Dosage: 1 CAPSUL DAILY
     Dates: start: 20110505, end: 20110512
  2. CYMBALTA [Suspect]
     Indication: BACK PAIN
     Dosage: 1 CAPSUL DAILY
     Dates: start: 20110505, end: 20110512

REACTIONS (11)
  - ABNORMAL BEHAVIOUR [None]
  - SEXUAL DYSFUNCTION [None]
  - PANIC ATTACK [None]
  - SUICIDAL IDEATION [None]
  - CONFUSIONAL STATE [None]
  - WEIGHT DECREASED [None]
  - HOSTILITY [None]
  - PRURITUS [None]
  - IRRITABILITY [None]
  - HYPERHIDROSIS [None]
  - DRY MOUTH [None]
